FAERS Safety Report 6977183-2 (Version None)
Quarter: 2010Q3

REPORT INFORMATION
  Report Type: 
  Country: None (occurrence: None)
  Receive Date: 20100910
  Receipt Date: 20100830
  Transmission Date: 20110219
  Serious: Yes (Other)
  Sender: FDA-Public Use
  Company Number: US-PFIZER INC-2010109360

PATIENT
  Sex: Male

DRUGS (2)
  1. LYRICA [Suspect]
     Indication: FIBROMYALGIA
     Dosage: UNK
     Dates: end: 20090901
  2. LYRICA [Suspect]
     Indication: ARTHRITIS

REACTIONS (3)
  - GINGIVAL BLEEDING [None]
  - HAEMATOCHEZIA [None]
  - SWOLLEN TONGUE [None]
